FAERS Safety Report 20845445 (Version 1)
Quarter: 2022Q2

REPORT INFORMATION
  Report Type: Report from Study
  Country: AR (occurrence: AR)
  Receive Date: 20220518
  Receipt Date: 20220518
  Transmission Date: 20220721
  Serious: Yes (Other)
  Sender: FDA-Public Use
  Company Number: AR-NOVARTISPH-NVSC2020AR267972

PATIENT
  Sex: Female

DRUGS (2)
  1. COSENTYX [Suspect]
     Active Substance: SECUKINUMAB
     Indication: Psoriasis
     Dosage: 150 MG, Q2W
     Route: 058
     Dates: start: 20181011
  2. COSENTYX [Suspect]
     Active Substance: SECUKINUMAB
     Indication: Psoriatic arthropathy
     Dosage: 300 MG, QMO
     Route: 058

REACTIONS (8)
  - Pneumonia [Unknown]
  - Fatigue [Unknown]
  - Sacral pain [Unknown]
  - Bone pain [Unknown]
  - Sneezing [Unknown]
  - Chest pain [Unknown]
  - Arthralgia [Unknown]
  - Inappropriate schedule of product administration [Unknown]
